FAERS Safety Report 5116266-9 (Version None)
Quarter: 2006Q3

REPORT INFORMATION
  Report Type: 
  Country: None (occurrence: None)
  Receive Date: 20060927
  Receipt Date: 20060922
  Transmission Date: 20061208
  Serious: Yes (Death)
  Sender: FDA-Public Use
  Company Number: CH-GLAXOSMITHKLINE-B0439757A

PATIENT
  Age: 77 Year
  Sex: Female

DRUGS (3)
  1. AVANDAMET [Suspect]
     Indication: DIABETES MELLITUS
     Dosage: 1TAB TWICE PER DAY
     Route: 048
     Dates: start: 20051010, end: 20060509
  2. AMARYL [Concomitant]
     Indication: DIABETES MELLITUS
     Dosage: 4MG PER DAY
     Route: 048
  3. ADALAT [Concomitant]
     Route: 065

REACTIONS (1)
  - HAEMORRHAGIC STROKE [None]
